FAERS Safety Report 8525522-3 (Version None)
Quarter: 2012Q3

REPORT INFORMATION
  Report Type: 
  Country: None (occurrence: None)
  Receive Date: 20120720
  Receipt Date: 20120716
  Transmission Date: 20120928
  Serious: Yes (Other)
  Sender: FDA-Public Use
  Company Number: GB-B.I. PHARMACEUTICALS,INC./RIDGEFIELD-2012-BP-16109YA

PATIENT
  Age: 63 Year
  Sex: Male
  Weight: 104 kg

DRUGS (12)
  1. BENDROFLUMETHIAZIDE (BENDROFLUMETHIAZIDE) [Concomitant]
     Dates: start: 20120312
  2. CITALOPRAM HYDROBROMIDE [Concomitant]
     Dates: start: 20120312, end: 20120605
  3. AMOXICILLIN [Concomitant]
     Dates: start: 20120503, end: 20120510
  4. BETAHISTINE (BETAHISTINE) [Concomitant]
     Dates: start: 20120312
  5. TAMSULOSIN HCL [Suspect]
     Dates: start: 20120508
  6. SILDENAFIL CITRATE [Concomitant]
     Dates: start: 20120411, end: 20120704
  7. ACETAMINOPHEN AND CODEINE PHOSPHATE [Concomitant]
     Dates: start: 20120312
  8. GABAPENTIN [Concomitant]
     Dates: start: 20120213
  9. AMITRIPTYLINE HYDROCHLORIDE [Concomitant]
     Dates: start: 20120312
  10. PRAVASTATIN [Concomitant]
     Dates: start: 20120312
  11. AMLODIPINE [Concomitant]
     Dates: start: 20120312
  12. CODEINE PHOSPHATE (CODEINE PHOSPHATE) [Concomitant]
     Dates: start: 20120528, end: 20120607

REACTIONS (2)
  - ERYTHEMA [None]
  - OEDEMA PERIPHERAL [None]
